FAERS Safety Report 18740244 (Version 14)
Quarter: 2022Q1

REPORT INFORMATION
  Report Type: Spontaneous
  Country: IN (occurrence: IN)
  Receive Date: 20210114
  Receipt Date: 20220329
  Transmission Date: 20220423
  Serious: Yes (Other)
  Sender: FDA-Public Use
  Company Number: IN-PFIZER INC-2018536543

PATIENT
  Age: 62 Year
  Sex: Female

DRUGS (14)
  1. PALBOCICLIB [Suspect]
     Active Substance: PALBOCICLIB
     Indication: Breast cancer metastatic
     Dosage: 125 MG, CYCLIC (ONCE DAILY, D1-D21, ONE WEEK OFF)
     Route: 048
     Dates: start: 20180212
  2. PALBOCICLIB [Suspect]
     Active Substance: PALBOCICLIB
     Dosage: 100 MG, CYCLIC (D1 - D21 WEEK OFF)
  3. PALBOCICLIB [Suspect]
     Active Substance: PALBOCICLIB
     Dosage: 125 MG, 1X/DAY
     Route: 048
     Dates: start: 20200213
  4. PALBOCICLIB [Suspect]
     Active Substance: PALBOCICLIB
     Dosage: 100 MG, CYCLIC (OD D1-D21, 1W OFF)
     Route: 048
  5. CCM [Concomitant]
     Dosage: UNK, 2X/DAY
  6. LETROZOLE [Concomitant]
     Active Substance: LETROZOLE
     Dosage: 2.5 MG, 1X/DAY
  7. FEMARA [Concomitant]
     Active Substance: LETROZOLE
     Dosage: 2.5 MG, 1X/DAY
  8. ACETAMINOPHEN\IBUPROFEN [Concomitant]
     Active Substance: ACETAMINOPHEN\IBUPROFEN
     Dosage: UNK
  9. NEUKINE [Concomitant]
     Dosage: UNK
     Route: 058
  10. ULTRACET [Concomitant]
     Active Substance: ACETAMINOPHEN\TRAMADOL HYDROCHLORIDE
     Dosage: UNK
  11. VITAMIN D NOS [Concomitant]
     Active Substance: VITAMIN D NOS
     Dosage: 6100 IU
  12. ZOLASTA [Concomitant]
     Dosage: UNK, MONTHLY
     Route: 042
  13. ZOLASTA [Concomitant]
     Dosage: 4 MG (IN 100 ML NS OVER 20 MINUTES)
  14. ZOLASTA [Concomitant]
     Dosage: (4) MONTHLY
     Route: 042

REACTIONS (27)
  - Leukopenia [Not Recovered/Not Resolved]
  - Renal disorder [Unknown]
  - Back pain [Unknown]
  - Oropharyngeal pain [Not Recovered/Not Resolved]
  - Asthenia [Not Recovered/Not Resolved]
  - Red blood cell count decreased [Not Recovered/Not Resolved]
  - Red cell distribution width increased [Not Recovered/Not Resolved]
  - Lymphocyte count increased [Recovered/Resolved]
  - Pyrexia [Unknown]
  - Haemoglobin decreased [Not Recovered/Not Resolved]
  - Haematocrit decreased [Not Recovered/Not Resolved]
  - Mean cell haemoglobin increased [Not Recovered/Not Resolved]
  - Mean platelet volume decreased [Recovered/Resolved]
  - Eosinophil count increased [Recovered/Resolved]
  - Discomfort [Unknown]
  - Neck pain [Unknown]
  - Blood test abnormal [Unknown]
  - White blood cell count decreased [Not Recovered/Not Resolved]
  - Mean cell haemoglobin concentration increased [Unknown]
  - Haemoglobin abnormal [Unknown]
  - Performance status decreased [Unknown]
  - Anisocytosis [Unknown]
  - Red blood cell hypochromic morphology present [Unknown]
  - Red blood cell microcytes present [Unknown]
  - Red blood cell macrocytes present [Unknown]
  - Blood creatinine increased [Unknown]
  - Off label use [Unknown]

NARRATIVE: CASE EVENT DATE: 20181217
